FAERS Safety Report 5614846-5 (Version None)
Quarter: 2008Q1

REPORT INFORMATION
  Report Type: 
  Country: None (occurrence: None)
  Receive Date: 20080131
  Receipt Date: 20080121
  Transmission Date: 20080703
  Serious: Yes (Disabling, Other)
  Sender: FDA-Public Use
  Company Number: 100#08#2008-00374

PATIENT
  Age: 17 Year
  Sex: Male

DRUGS (4)
  1. METHOTREXATE          (MTX) [Suspect]
     Indication: LEUKAEMIC INFILTRATION BRAIN
     Dosage: 12.5 MG, INTRATHECAL
     Route: 037
  2. CYTARABINE [Suspect]
     Indication: LEUKAEMIA RECURRENT
     Dosage: 40 MG INTRATHECAL
     Route: 037
  3. CYTARABINE [Suspect]
     Indication: LEUKAEMIC INFILTRATION BRAIN
     Dosage: 40 MG INTRATHECAL
     Route: 037
  4. DEXAMETHASONE TAB [Concomitant]

REACTIONS (3)
  - BLOOD PRESSURE INCREASED [None]
  - MYELOPATHY [None]
  - TACHYCARDIA [None]
